FAERS Safety Report 15322950 (Version 2)
Quarter: 2018Q3

REPORT INFORMATION
  Report Type: Report from Study
  Country: CA (occurrence: CA)
  Receive Date: 20180827
  Receipt Date: 20180920
  Transmission Date: 20181010
  Serious: Yes (Death, Hospitalization, Other)
  Sender: FDA-Public Use
  Company Number: CA-JNJFOC-20180821774

PATIENT
  Sex: Male
  Weight: 61.3 kg

DRUGS (1)
  1. STELARA [Suspect]
     Active Substance: USTEKINUMAB
     Indication: PSORIASIS
     Route: 058
     Dates: start: 20161024

REACTIONS (5)
  - Death [Fatal]
  - Cerebrovascular accident [Unknown]
  - Tooth abscess [Unknown]
  - Throat irritation [Unknown]
  - Endoscopy [Unknown]

NARRATIVE: CASE EVENT DATE: 2018
